FAERS Safety Report 4917390-3 (Version None)
Quarter: 2006Q1

REPORT INFORMATION
  Report Type: 
  Country: None (occurrence: None)
  Receive Date: 20060221
  Receipt Date: 20051227
  Transmission Date: 20060701
  Serious: Yes (Death, Life-Threatening)
  Sender: FDA-Public Use
  Company Number: JP-JPN-A20053202

PATIENT
  Age: 21 Year
  Sex: Female
  Weight: 50 kg

DRUGS (5)
  1. PAXIL [Suspect]
     Indication: PANIC DISORDER
     Route: 048
     Dates: start: 20050326, end: 20051118
  2. ANAFRANIL [Suspect]
     Indication: ANXIETY DISORDER
     Dosage: 25MG VARIABLE DOSE
     Route: 048
     Dates: start: 20040801, end: 20051119
  3. LENDORMIN [Concomitant]
     Indication: INSOMNIA
     Dosage: .25MG PER DAY
     Route: 048
     Dates: start: 20050930, end: 20051119
  4. SOLANAX [Concomitant]
     Indication: ANXIETY DISORDER
     Route: 048
     Dates: start: 20050218, end: 20051119
  5. DEPAS [Concomitant]
     Indication: ANXIETY DISORDER
     Route: 048
     Dates: start: 20040801, end: 20051119

REACTIONS (2)
  - COMPLETED SUICIDE [None]
  - DROWNING [None]
